FAERS Safety Report 5688822-0 (Version None)
Quarter: 2008Q1

REPORT INFORMATION
  Report Type: 
  Country: None (occurrence: None)
  Receive Date: 20080331
  Receipt Date: 20010912
  Transmission Date: 20080703
  Serious: Yes (Death, Hospitalization)
  Sender: FDA-Public Use
  Company Number: JP-ROCHE-267755

PATIENT
  Age: 73 Year
  Sex: Male

DRUGS (9)
  1. PANALDINE [Suspect]
     Indication: ACUTE MYOCARDIAL INFARCTION
     Route: 048
     Dates: start: 20010719, end: 20010811
  2. PROPACALL [Suspect]
     Indication: ACUTE MYOCARDIAL INFARCTION
     Route: 048
     Dates: start: 20010620, end: 20010718
  3. BUFFERIN [Concomitant]
     Indication: ACUTE MYOCARDIAL INFARCTION
     Route: 048
     Dates: start: 20010620, end: 20010811
  4. ITOROL [Concomitant]
     Indication: ACUTE MYOCARDIAL INFARCTION
     Route: 048
     Dates: start: 20010620, end: 20010811
  5. TENORMIN [Concomitant]
     Indication: ACUTE MYOCARDIAL INFARCTION
     Route: 048
     Dates: start: 20010620, end: 20010811
  6. FRANDOL [Concomitant]
     Indication: ACUTE MYOCARDIAL INFARCTION
     Route: 061
     Dates: start: 20010620, end: 20010811
  7. HARNAL [Concomitant]
     Route: 048
     Dates: start: 20010620, end: 20010811
  8. LIPITOR [Concomitant]
     Route: 048
     Dates: start: 20010719, end: 20010811
  9. STOGAR [Concomitant]
     Indication: GASTRITIS
     Route: 048
     Dates: start: 20010719, end: 20010811

REACTIONS (7)
  - AGRANULOCYTOSIS [None]
  - CEREBROVASCULAR DISORDER [None]
  - DYSARTHRIA [None]
  - HYPOTENSION [None]
  - LEUKOPENIA [None]
  - MALAISE [None]
  - SEPSIS [None]
